FAERS Safety Report 9256987 (Version 3)
Quarter: 2014Q1

REPORT INFORMATION
  Report Type: Spontaneous
  Country: US (occurrence: US)
  Receive Date: 20130426
  Receipt Date: 20140311
  Transmission Date: 20141002
  Serious: Yes (Other)
  Sender: FDA-Public Use
  Company Number: US-ASTRAZENECA-2013SE27353

PATIENT
  Age: 739 Month
  Sex: Male
  Weight: 74.8 kg

DRUGS (11)
  1. NEXIUM [Suspect]
     Indication: GASTROOESOPHAGEAL REFLUX DISEASE
     Route: 048
     Dates: start: 20071026
  2. NEXIUM [Suspect]
     Indication: GASTROOESOPHAGEAL REFLUX DISEASE
     Dosage: 1 TIME A DAY
     Route: 048
     Dates: start: 2008, end: 2009
  3. PRILOSEC [Suspect]
     Route: 048
     Dates: start: 2010, end: 2011
  4. PREVACID [Concomitant]
     Dates: start: 2003, end: 2010
  5. PREVACID [Concomitant]
     Dates: start: 2011
  6. TUMS [Concomitant]
     Dosage: AS NEEDED
     Dates: start: 2003
  7. ALKA SELTZER [Concomitant]
     Dosage: AS NEEDED
     Dates: start: 2003
  8. HYDROCODONE [Concomitant]
     Dates: start: 20070518
  9. LEXAPRO [Concomitant]
     Dates: start: 20070508
  10. AMBIEN [Concomitant]
     Dates: start: 20030514
  11. LEVAQUIN [Concomitant]

REACTIONS (6)
  - Joint dislocation [Unknown]
  - Convulsion [Unknown]
  - Osteoporosis [Unknown]
  - Bone disorder [Unknown]
  - Upper limb fracture [Unknown]
  - Clavicle fracture [Unknown]
